FAERS Safety Report 13456020 (Version 1)
Quarter: 2017Q2

REPORT INFORMATION
  Report Type: Spontaneous
  Country: KR (occurrence: KR)
  Receive Date: 20170419
  Receipt Date: 20170419
  Transmission Date: 20170830
  Serious: Yes (Hospitalization)
  Sender: FDA-Public Use
  Company Number: KR-VALIDUS PHARMACEUTICALS LLC-KR-2017VAL000617

PATIENT
  Age: 70 Year
  Sex: Male

DRUGS (7)
  1. PETHIDINE HYDROCHLORIDE [Suspect]
     Active Substance: MEPERIDINE HYDROCHLORIDE
     Indication: CHILLS
     Dosage: 25 MILLIGRAM(S);ONCE
     Route: 042
  2. ASPIRIN                            /00002701/ [Concomitant]
     Active Substance: ASPIRIN
     Indication: PRODUCT USED FOR UNKNOWN INDICATION
     Dosage: UNK
  3. VALSARTAN. [Concomitant]
     Active Substance: VALSARTAN
     Indication: PRODUCT USED FOR UNKNOWN INDICATION
     Dosage: UNK
  4. GLIMEPIRIDE. [Concomitant]
     Active Substance: GLIMEPIRIDE
     Indication: PRODUCT USED FOR UNKNOWN INDICATION
     Dosage: UNK
  5. ATORVASTATIN [Concomitant]
     Active Substance: ATORVASTATIN
     Indication: PRODUCT USED FOR UNKNOWN INDICATION
     Dosage: UNK
  6. CARVEDILOL. [Concomitant]
     Active Substance: CARVEDILOL
     Indication: PRODUCT USED FOR UNKNOWN INDICATION
     Dosage: UNK
  7. BUPIVACAINE. [Concomitant]
     Active Substance: BUPIVACAINE
     Indication: PRODUCT USED FOR UNKNOWN INDICATION
     Dosage: UNK

REACTIONS (20)
  - Retching [Unknown]
  - Muscle rigidity [Unknown]
  - Tremor [Unknown]
  - Confusional state [Unknown]
  - Stupor [Unknown]
  - Mydriasis [Unknown]
  - Depressed level of consciousness [Unknown]
  - Vomiting [Unknown]
  - Serotonin syndrome [Recovering/Resolving]
  - Tachycardia [Unknown]
  - Tachypnoea [Unknown]
  - Hyperhidrosis [Unknown]
  - Agitation [Unknown]
  - Chest discomfort [Unknown]
  - Myoclonus [Unknown]
  - Dyspnoea [Unknown]
  - Hypertension [Unknown]
  - Hyperthermia [Unknown]
  - Nausea [Unknown]
  - Somnolence [Unknown]
